FAERS Safety Report 19735020 (Version 1)
Quarter: 2021Q3

REPORT INFORMATION
  Report Type: Spontaneous
  Country: JP (occurrence: JP)
  Receive Date: 20210823
  Receipt Date: 20210823
  Transmission Date: 20211014
  Serious: Yes (Hospitalization)
  Sender: FDA-Public Use
  Company Number: JP-ELI_LILLY_AND_COMPANY-JP202108005914

PATIENT
  Age: 75 Year
  Sex: Male
  Weight: 61 kg

DRUGS (7)
  1. AMLODIPINE [Concomitant]
     Active Substance: AMLODIPINE BESYLATE
     Dosage: 1 DOSAGE FORM, DAILY
     Route: 048
  2. INSULIN LISPRO [Suspect]
     Active Substance: INSULIN LISPRO
     Indication: TYPE 2 DIABETES MELLITUS
     Dosage: UNK
     Route: 058
  3. INSULIN GLARGINE [Suspect]
     Active Substance: INSULIN GLARGINE
     Indication: TYPE 2 DIABETES MELLITUS
     Dosage: UNK
     Route: 058
  4. LIMAPROST ALFADEX [Concomitant]
     Active Substance: LIMAPROST
     Dosage: 3 DOSAGE FORM, DAILY
     Route: 048
  5. GLIMEPIRIDE. [Concomitant]
     Active Substance: GLIMEPIRIDE
     Dosage: 1 DOSAGE FORM, DAILY
     Route: 048
  6. OLMESARTAN [Concomitant]
     Active Substance: OLMESARTAN
     Dosage: 1 DOSAGE FORM, DAILY
     Route: 048
  7. PRAVASTATIN SODIUM. [Concomitant]
     Active Substance: PRAVASTATIN SODIUM
     Dosage: 1 DOSAGE FORM, DAILY
     Route: 048

REACTIONS (1)
  - Acute myocardial infarction [Recovering/Resolving]
